FAERS Safety Report 8921123 (Version 1)
Quarter: 2012Q4

REPORT INFORMATION
  Report Type: 
  Country: US (occurrence: US)
  Receive Date: 20121123
  Receipt Date: 20121123
  Transmission Date: 20130627
  Serious: Yes (Hospitalization)
  Sender: FDA-Public Use
  Company Number: US-B.I. PHARMACEUTICALS,INC./RIDGEFIELD-2012-BI-00834BP

PATIENT
  Sex: Male
  Weight: 82 kg

DRUGS (7)
  1. PRADAXA [Suspect]
     Indication: ATRIAL FIBRILLATION
     Dosage: 150 mg
     Route: 048
     Dates: start: 201111
  2. UROXATRAL [Concomitant]
     Dosage: 10 mg
     Route: 048
     Dates: start: 2011
  3. LANOXIN [Concomitant]
     Indication: CARDIAC DISORDER
     Dosage: 0.25 mg
     Route: 048
     Dates: start: 2011
  4. SYNTHROID [Concomitant]
     Indication: HYPOTHYROIDISM
     Dosage: 50 mcg
     Route: 048
     Dates: start: 2011
  5. MULTIVITAMIN [Concomitant]
     Indication: SUPPLEMENTATION THERAPY
     Dosage: 1 anz
     Route: 048
     Dates: start: 2011
  6. FISH OIL [Concomitant]
     Indication: SUPPLEMENTATION THERAPY
     Dosage: 1000 mg
     Route: 048
     Dates: start: 2011
  7. CRESTOR [Concomitant]
     Indication: CARDIAC DISORDER
     Dosage: 5 mg
     Route: 048
     Dates: start: 2011

REACTIONS (2)
  - Lung neoplasm malignant [Unknown]
  - Abnormal loss of weight [Unknown]
